FAERS Safety Report 4325597-1 (Version None)
Quarter: 2004Q1

REPORT INFORMATION
  Report Type: 
  Country: None (occurrence: None)
  Receive Date: 20040324
  Receipt Date: 20040302
  Transmission Date: 20041129
  Serious: Yes (Hospitalization)
  Sender: FDA-Public Use
  Company Number: USA040259833

PATIENT
  Age: 2 Year
  Sex: Male
  Weight: 14 kg

DRUGS (2)
  1. CIALIS [Suspect]
     Dosage: 20 MG
     Dates: start: 20040219
  2. MOTRIN [Concomitant]

REACTIONS (5)
  - ERECTION INCREASED [None]
  - MEDICATION ERROR [None]
  - OVERDOSE [None]
  - SINUS ARRHYTHMIA [None]
  - SINUS BRADYCARDIA [None]
